FAERS Safety Report 6405297-4 (Version None)
Quarter: 2009Q4

REPORT INFORMATION
  Report Type: 
  Country: None (occurrence: None)
  Receive Date: 20091016
  Receipt Date: 20091016
  Transmission Date: 20100525
  Serious: Yes (Life-Threatening, Other)
  Sender: FDA-Public Use
  Company Number: None

PATIENT
  Sex: Female
  Weight: 79.3795 kg

DRUGS (1)
  1. ACTONEL [Suspect]
     Indication: OSTEOPOROSIS
     Dosage: ONCE A MONTH 150 MG
     Dates: start: 20090901

REACTIONS (5)
  - ABDOMINAL DISCOMFORT [None]
  - ARTHRALGIA [None]
  - CHEST PAIN [None]
  - DIZZINESS [None]
  - PAIN [None]
